FAERS Safety Report 15715774 (Version 2)
Quarter: 2018Q4

REPORT INFORMATION
  Report Type: Report from Study
  Country: NL (occurrence: NL)
  Receive Date: 20181212
  Receipt Date: 20181219
  Transmission Date: 20190205
  Serious: Yes (Death, Hospitalization, Other)
  Sender: FDA-Public Use
  Company Number: NL-BRISTOL-MYERS SQUIBB COMPANY-BMS-2018-117021

PATIENT
  Age: 59 Year
  Sex: Male
  Weight: 95.2 kg

DRUGS (3)
  1. NIVOLUMAB [Suspect]
     Active Substance: NIVOLUMAB
     Indication: PLASMA CELL MYELOMA
     Dosage: 240 MG, Q2WK
     Route: 042
     Dates: start: 20180822, end: 20181016
  2. DARATUMUMAB [Suspect]
     Active Substance: DARATUMUMAB
     Indication: PLASMA CELL MYELOMA
     Dosage: 16 MG/KG, Q2WK
     Route: 065
     Dates: start: 20180821, end: 20181016
  3. CYCLOPHOSPHAMIDE. [Suspect]
     Active Substance: CYCLOPHOSPHAMIDE
     Indication: PLASMA CELL MYELOMA
     Dosage: 50 MG, DAILY
     Route: 048
     Dates: start: 20180821, end: 20181108

REACTIONS (2)
  - Malignant neoplasm progression [Fatal]
  - Pneumococcal sepsis [Unknown]

NARRATIVE: CASE EVENT DATE: 20181206
